FAERS Safety Report 4836477-7 (Version None)
Quarter: 2005Q4

REPORT INFORMATION
  Report Type: 
  Country: None (occurrence: None)
  Receive Date: 20051118
  Receipt Date: 20051020
  Transmission Date: 20060501
  Serious: Yes (Hospitalization, Other)
  Sender: FDA-Public Use
  Company Number: 2005145565

PATIENT
  Age: 81 Year
  Sex: Female
  Weight: 40 kg

DRUGS (7)
  1. LIPITOR [Suspect]
     Indication: HYPERLIPIDAEMIA
     Dosage: 10 MG (10 MG, QD), ORAL
     Route: 048
     Dates: start: 20041024, end: 20050912
  2. DOXAZOSIN MESYLATE [Concomitant]
  3. BLOPRESS (CANDESARTAN CILEXETIL) [Concomitant]
  4. CONIEL (BENIDIPINE HYDROCHLORIDE) [Concomitant]
  5. FAMOTIDINE [Concomitant]
  6. TAKA-DIASTASE (DIASTASE, TAKA) [Concomitant]
  7. DAI-KENCHU-TO (DAI-KENCHU-TO) [Concomitant]

REACTIONS (1)
  - RHABDOMYOLYSIS [None]
